FAERS Safety Report 13624413 (Version 1)
Quarter: 2017Q2

REPORT INFORMATION
  Report Type: Spontaneous
  Country: US (occurrence: US)
  Receive Date: 20170607
  Receipt Date: 20170607
  Transmission Date: 20170830
  Serious: No
  Sender: FDA-Public Use
  Company Number: US-PURDUE-USA-2016-0135408

PATIENT
  Age: 45 Year
  Sex: Female

DRUGS (2)
  1. TRAMADOL. [Suspect]
     Active Substance: TRAMADOL
     Indication: ANALGESIC THERAPY
     Dosage: 50 MG, PRN
     Route: 048
     Dates: end: 20161201
  2. BUTRANS [Suspect]
     Active Substance: BUPRENORPHINE
     Indication: ANALGESIC THERAPY
     Dosage: 15 MCG/HR, WEEKLY
     Route: 062
     Dates: start: 20161130

REACTIONS (2)
  - Blood pressure increased [Recovered/Resolved]
  - Product adhesion issue [Unknown]

NARRATIVE: CASE EVENT DATE: 20161130
